FAERS Safety Report 5798437-1 (Version None)
Quarter: 2008Q2

REPORT INFORMATION
  Report Type: 
  Country: None (occurrence: None)
  Receive Date: 20080601
  Receipt Date: 20080127
  Transmission Date: 20081010
  Serious: No
  Sender: FDA-Public Use
  Company Number: US200801005983

PATIENT
  Age: 78 Year
  Sex: Female
  Weight: 78 kg

DRUGS (3)
  1. BYETTA [Suspect]
     Indication: TYPE 2 DIABETES MELLITUS
     Dosage: 5 UG, 2/D, SUBCUTANEOUS
     Route: 058
     Dates: start: 20071101, end: 20080126
  2. PRECOSE [Concomitant]
  3. DRUG USED IN DIABETES [Concomitant]

REACTIONS (6)
  - ANOREXIA [None]
  - BLOOD GLUCOSE INCREASED [None]
  - COUGH [None]
  - INFLUENZA LIKE ILLNESS [None]
  - MALAISE [None]
  - PYREXIA [None]
